FAERS Safety Report 7331241-1 (Version None)
Quarter: 2011Q1

REPORT INFORMATION
  Report Type: 
  Country: None (occurrence: None)
  Receive Date: 20110304
  Receipt Date: 20110228
  Transmission Date: 20110831
  Serious: Yes (Other)
  Sender: FDA-Public Use
  Company Number: US-PFIZER INC-2009314950

PATIENT
  Sex: Female
  Weight: 95.238 kg

DRUGS (5)
  1. LISINOPRIL [Concomitant]
     Indication: BLOOD PRESSURE
     Dosage: 10 MG, 1X/DAY
  2. HYDROCODONE BITARTRATE [Concomitant]
     Indication: PAIN
     Dosage: 10/500 MG, 4X/DAY
  3. CHANTIX [Suspect]
     Indication: SMOKING CESSATION THERAPY
     Dosage: 0.5 MG, 1X/DAY
     Route: 048
     Dates: start: 20090921, end: 20090930
  4. ROPINIROLE HYDROCHLORIDE [Concomitant]
     Indication: RESTLESS LEGS SYNDROME
     Dosage: 1 MG, 1X/DAY
  5. ALPRAZOLAM [Concomitant]
     Indication: PANIC ATTACK
     Dosage: 1 MG, 3X/DAY

REACTIONS (4)
  - DEPRESSED MOOD [None]
  - DISSOCIATION [None]
  - HALLUCINATION [None]
  - FEELING ABNORMAL [None]
